FAERS Safety Report 10050528 (Version 1)
Quarter: 2014Q2

REPORT INFORMATION
  Report Type: Spontaneous
  Country: US (occurrence: US)
  Receive Date: 20140401
  Receipt Date: 20140401
  Transmission Date: 20141212
  Serious: No
  Sender: FDA-Public Use
  Company Number: US-ASTRAZENECA-2014SE00069

PATIENT
  Age: 69 Year
  Sex: Male
  Weight: 99.8 kg

DRUGS (10)
  1. NEXIUM [Suspect]
     Indication: GASTROOESOPHAGEAL REFLUX DISEASE
     Dosage: BID
     Route: 048
     Dates: start: 201307, end: 201309
  2. CLOPIDIGREL [Interacting]
     Indication: CARDIAC DISORDER
     Route: 048
     Dates: start: 2005
  3. BYSTOLIC [Concomitant]
     Indication: CARDIAC DISORDER
     Route: 048
     Dates: start: 2005
  4. ROBINIROLE HCL [Concomitant]
     Indication: PARKINSON^S DISEASE
     Route: 048
     Dates: start: 201310
  5. BENICAR [Concomitant]
     Indication: BLOOD PRESSURE ABNORMAL
     Route: 048
     Dates: start: 201310
  6. GLIPIZIDE [Concomitant]
     Indication: DIABETES MELLITUS
     Route: 048
     Dates: start: 2008
  7. ISOSORBIDE MONO [Concomitant]
     Indication: BLOOD PRESSURE ABNORMAL
     Route: 048
  8. DONEPEZIL [Concomitant]
     Indication: MEMORY IMPAIRMENT
     Route: 048
  9. SIMVASTATIN [Concomitant]
     Indication: BLOOD CHOLESTEROL ABNORMAL
     Route: 048
     Dates: start: 2008
  10. TRAMADOL [Concomitant]
     Indication: PAIN
     Route: 048

REACTIONS (3)
  - Drug interaction [Unknown]
  - Abdominal discomfort [Not Recovered/Not Resolved]
  - Off label use [Unknown]
